FAERS Safety Report 25733621 (Version 1)
Quarter: 2025Q3

REPORT INFORMATION
  Report Type: Spontaneous
  Country: CN (occurrence: CN)
  Receive Date: 20250828
  Receipt Date: 20250828
  Transmission Date: 20251020
  Serious: Yes (Hospitalization, Other)
  Sender: PHARMOBEDIENT CONSULTING, LLC
  Company Number: CN-Pharmobedient-000116

PATIENT
  Age: 32 Year
  Sex: Male
  Weight: 0 kg

DRUGS (1)
  1. IBUPROFEN [Suspect]
     Active Substance: IBUPROFEN
     Indication: Pyrexia
     Dates: start: 20230101

REACTIONS (2)
  - Drug-induced liver injury [Recovering/Resolving]
  - Hepatitis cholestatic [Recovering/Resolving]
